FAERS Safety Report 8827950 (Version 1)
Quarter: 2012Q4

REPORT INFORMATION
  Report Type: 
  Country: FR (occurrence: FR)
  Receive Date: 20121005
  Receipt Date: 20121005
  Transmission Date: 20130627
  Serious: Yes (Hospitalization)
  Sender: FDA-Public Use
  Company Number: FR-MPIJNJ-2012-06804

PATIENT

DRUGS (16)
  1. VELCADE [Suspect]
     Indication: MULTIPLE MYELOMA
     Dosage: 2.34 mg, UNK
     Route: 065
     Dates: start: 20070731, end: 20070911
  2. MELPHALAN [Suspect]
     Indication: PRODUCT USED FOR UNKNOWN INDICATION
     Dosage: 255 mg, UNK
     Route: 065
     Dates: start: 20071123
  3. DECADRON [Suspect]
     Indication: PRODUCT USED FOR UNKNOWN INDICATION
     Dosage: UNK
     Route: 065
     Dates: start: 20070219, end: 20070911
  4. REVLIMID [Suspect]
     Indication: PRODUCT USED FOR UNKNOWN INDICATION
     Dosage: 5 mg, UNK
     Route: 065
     Dates: start: 20110610, end: 201207
  5. REVLIMID [Suspect]
     Dosage: 5 mg, UNK
     Dates: start: 201207
  6. DOXORUBICIN [Suspect]
     Indication: PRODUCT USED FOR UNKNOWN INDICATION
     Dosage: 16.1 mg, UNK
     Route: 065
     Dates: start: 20070219, end: 20070702
  7. VINCRISTINE [Suspect]
     Dosage: 0.4 mg, UNK
     Route: 065
     Dates: start: 20070219, end: 20070702
  8. HYPERIUM                           /00939801/ [Concomitant]
     Indication: BLOOD PRESSURE
     Dosage: 1 mg, UNK
  9. LASILIX                            /00032601/ [Concomitant]
     Indication: BLOOD PRESSURE
     Dosage: 40 mg, UNK
  10. ARANESP [Concomitant]
     Indication: PRODUCT USED FOR UNKNOWN INDICATION
     Dosage: 80 UNK, UNK
  11. ALFACALCIDOL [Concomitant]
     Indication: PRODUCT USED FOR UNKNOWN INDICATION
  12. KAYEXALATE [Concomitant]
     Indication: PRODUCT USED FOR UNKNOWN INDICATION
  13. AREDIA [Concomitant]
     Indication: PRODUCT USED FOR UNKNOWN INDICATION
  14. RENAGEL                            /01459901/ [Concomitant]
     Indication: PRODUCT USED FOR UNKNOWN INDICATION
     Dosage: UNK
     Dates: start: 2009
  15. CALCIDIA [Concomitant]
     Indication: PRODUCT USED FOR UNKNOWN INDICATION
     Dosage: UNK
     Dates: start: 2011
  16. CALCIUM CARBONATE [Concomitant]
     Indication: PRODUCT USED FOR UNKNOWN INDICATION
     Dosage: UNK
     Dates: end: 2011

REACTIONS (2)
  - Malignant melanoma [Not Recovered/Not Resolved]
  - Plasma cell myeloma [Not Recovered/Not Resolved]
